FAERS Safety Report 8551400-X (Version None)
Quarter: 2012Q3

REPORT INFORMATION
  Report Type: 
  Country: None (occurrence: None)
  Receive Date: 20120730
  Receipt Date: 20120719
  Transmission Date: 20120928
  Serious: Yes (Other)
  Sender: FDA-Public Use
  Company Number: US-ASTRAZENECA-2010SE30084

PATIENT
  Age: 54 Year
  Sex: Male
  Weight: 74.8 kg

DRUGS (36)
  1. OXYGEN [Concomitant]
     Dosage: THREE LITRES AND FOUR LITRES WITH WALKING
  2. FLOMAX [Concomitant]
  3. SINGULAIR [Concomitant]
  4. NEURONTIN [Concomitant]
  5. REMERON [Concomitant]
     Indication: SLEEP DISORDER
  6. IMDUR [Concomitant]
  7. CRESTOR [Suspect]
     Indication: BLOOD CHOLESTEROL INCREASED
     Route: 048
  8. MOBIC [Concomitant]
  9. MYCELEX [Concomitant]
  10. SEROQUEL [Suspect]
     Indication: ANXIETY
     Route: 048
  11. LORTAB [Concomitant]
  12. PEPCID [Concomitant]
     Dosage: DAILY
  13. RESTASIS [Concomitant]
     Route: 047
  14. SYMBICORT [Suspect]
     Dosage: 160/4.5 MCG TWO PUFF TWICE A DAY
     Route: 055
     Dates: start: 20110101
  15. LISINOPRIL [Suspect]
     Route: 048
  16. PRILOSEC OTC [Suspect]
     Route: 048
  17. EFFEXOR XR [Concomitant]
  18. TRAVATON [Concomitant]
  19. ATIVAN [Concomitant]
  20. ASPIRIN [Concomitant]
  21. VITAMIN D [Concomitant]
     Dosage: 5000 UNITS
  22. RECLAST [Concomitant]
     Indication: OSTEOPOROSIS
     Dosage: ONCE PER YEAR
  23. SYMBICORT [Suspect]
     Indication: ASTHMA
     Dosage: 160/4.5 MCG TWO PUFF TWICE A DAY
     Route: 055
     Dates: start: 20090101
  24. BACTRIM DS [Concomitant]
  25. ROBAXIN [Concomitant]
  26. FENOFIBRATE [Concomitant]
  27. NASONEX [Concomitant]
  28. NITROGLYCERIN [Concomitant]
     Dosage: AS NEEDED
  29. FLORINES [Concomitant]
  30. MUCINEX [Concomitant]
  31. GENTAMICIN [Concomitant]
     Dosage: THIRD WEEK OF MONTH
  32. FISH OIL [Concomitant]
  33. SYMBICORT [Suspect]
     Indication: CHRONIC OBSTRUCTIVE PULMONARY DISEASE
     Dosage: 160/4.5 MCG TWO PUFF TWICE A DAY
     Route: 055
     Dates: start: 20090101
  34. SYMBICORT [Suspect]
     Dosage: 160/4.5 MCG TWO PUFF TWICE A DAY
     Route: 055
     Dates: start: 20110101
  35. ALBUTEROL [Concomitant]
     Dosage: DAILY
     Route: 055
  36. SPIRIVA [Concomitant]
     Dosage: DAILY

REACTIONS (28)
  - ANKYLOSING SPONDYLITIS [None]
  - LUNG INFECTION [None]
  - PYREXIA [None]
  - ARTHRITIS [None]
  - RHEUMATOID ARTHRITIS [None]
  - SLEEP DISORDER [None]
  - DEPRESSION [None]
  - DYSPHAGIA [None]
  - ASTHMA [None]
  - DRUG DOSE OMISSION [None]
  - AORTIC ANEURYSM [None]
  - LUNG DISORDER [None]
  - PNEUMONIA [None]
  - BRONCHITIS [None]
  - SINUSITIS [None]
  - GLAUCOMA [None]
  - OSTEOPOROSIS [None]
  - GASTROOESOPHAGEAL REFLUX DISEASE [None]
  - IMMUNE SYSTEM DISORDER [None]
  - CATARACT [None]
  - CARPAL TUNNEL SYNDROME [None]
  - PSORIASIS [None]
  - TACHYCARDIA [None]
  - FIBROMYALGIA [None]
  - TUBERCULOSIS [None]
  - APHASIA [None]
  - NERVE COMPRESSION [None]
  - BACK PAIN [None]
